FAERS Safety Report 4611630-6 (Version None)
Quarter: 2005Q1

REPORT INFORMATION
  Report Type: 
  Country: None (occurrence: None)
  Receive Date: 20050317
  Receipt Date: 20050304
  Transmission Date: 20050727
  Serious: Yes (Other)
  Sender: FDA-Public Use
  Company Number: NO-ROCHE-398243

PATIENT
  Age: 18 Year
  Sex: Female

DRUGS (2)
  1. ROACCUTAN [Suspect]
     Indication: ACNE
     Route: 048
     Dates: start: 20040415, end: 20040915
  2. HUMALOG [Concomitant]
     Route: 065
     Dates: end: 20041015

REACTIONS (1)
  - INSULIN RESISTANCE [None]
